FAERS Safety Report 7389602-0 (Version None)
Quarter: 2011Q2

REPORT INFORMATION
  Report Type: 
  Country: None (occurrence: None)
  Receive Date: 20110401
  Receipt Date: 20110322
  Transmission Date: 20111010
  Serious: Yes (Other)
  Sender: FDA-Public Use
  Company Number: IT-BAXTER-2011BH008490

PATIENT

DRUGS (6)
  1. CARBOPLATIN [Suspect]
     Indication: NEUROBLASTOMA
     Route: 042
  2. TOPOTECAN [Suspect]
     Indication: NEUROBLASTOMA
     Route: 042
  3. ETOPOSIDE [Suspect]
     Indication: NEUROBLASTOMA
     Route: 042
  4. CYCLOPHOSPHAMIDE [Suspect]
     Indication: NEUROBLASTOMA
     Route: 042
  5. MESNA [Concomitant]
     Indication: PROPHYLAXIS
     Route: 042
  6. IFOSFAMIDE [Suspect]
     Indication: NEUROBLASTOMA
     Route: 042

REACTIONS (1)
  - NEUTROPENIA [None]
